FAERS Safety Report 4908432-X (Version None)
Quarter: 2006Q1

REPORT INFORMATION
  Report Type: 
  Country: None (occurrence: None)
  Receive Date: 20060210
  Receipt Date: 20051212
  Transmission Date: 20060701
  Serious: Yes (Death, Life-Threatening)
  Sender: FDA-Public Use
  Company Number: JP-BRISTOL-MYERS SQUIBB COMPANY-13210836

PATIENT
  Age: 38 Year
  Sex: Female

DRUGS (8)
  1. BLEOMYCIN [Suspect]
     Indication: OVARIAN GERM CELL CANCER
     Route: 042
     Dates: start: 20050720, end: 20050915
  2. VEPESID [Suspect]
     Indication: OVARIAN GERM CELL CANCER
     Route: 042
     Dates: start: 20050720, end: 20050904
  3. RANDA [Suspect]
     Indication: OVARIAN GERM CELL CANCER
     Route: 042
     Dates: start: 20050720, end: 20050904
  4. DECADRON SRC [Concomitant]
     Route: 042
     Dates: start: 20050720, end: 20050904
  5. KYTRIL [Concomitant]
     Route: 042
     Dates: start: 20050720, end: 20050904
  6. PRIMPERAN INJ [Concomitant]
     Route: 042
     Dates: start: 20050720, end: 20050915
  7. LASIX [Concomitant]
     Route: 042
     Dates: start: 20050720, end: 20050904
  8. HIBERNA [Concomitant]
     Route: 042
     Dates: start: 20050720, end: 20050904

REACTIONS (2)
  - INTERSTITIAL LUNG DISEASE [None]
  - RESPIRATORY FAILURE [None]
